FAERS Safety Report 8993214 (Version 1)
Quarter: 2013Q1

REPORT INFORMATION
  Report Type: Spontaneous
  Country: CH (occurrence: CH)
  Receive Date: 20130102
  Receipt Date: 20130102
  Transmission Date: 20140127
  Serious: Yes (Life-Threatening, Hospitalization)
  Sender: FDA-Public Use
  Company Number: CH-ROCHE-1175006

PATIENT
  Age: 90 Year
  Sex: Female

DRUGS (16)
  1. ROCEPHIN [Suspect]
     Indication: PRODUCT USED FOR UNKNOWN INDICATION
     Route: 065
     Dates: start: 20121205, end: 20121209
  2. ZALDIAR [Suspect]
     Indication: PAIN
     Dosage: 37.5 MG TRAMADOL HYDROCHLORIDE AND 325 MG PARACETAMOL
     Route: 048
     Dates: start: 20121205, end: 20121209
  3. PARACETAMOL [Suspect]
     Indication: PAIN
     Route: 048
     Dates: start: 20121205, end: 20121209
  4. XARELTO [Suspect]
     Indication: PRODUCT USED FOR UNKNOWN INDICATION
     Route: 065
     Dates: start: 20121207, end: 20121209
  5. AMLODIPINE [Suspect]
     Indication: PRODUCT USED FOR UNKNOWN INDICATION
     Route: 065
     Dates: end: 20121208
  6. REMINYL [Suspect]
     Indication: PRODUCT USED FOR UNKNOWN INDICATION
     Route: 065
     Dates: end: 20121211
  7. ZOLPIDEM [Suspect]
     Indication: PRODUCT USED FOR UNKNOWN INDICATION
     Route: 065
  8. INEGY [Suspect]
     Indication: PRODUCT USED FOR UNKNOWN INDICATION
     Route: 065
     Dates: end: 20121208
  9. CIPRALEX [Suspect]
     Indication: PRODUCT USED FOR UNKNOWN INDICATION
     Route: 065
     Dates: end: 20121206
  10. FLAGYL [Suspect]
     Indication: PRODUCT USED FOR UNKNOWN INDICATION
     Route: 065
     Dates: start: 20121205, end: 20121209
  11. ESOMEPRAZOLE [Suspect]
     Indication: PRODUCT USED FOR UNKNOWN INDICATION
     Route: 065
     Dates: start: 20121205
  12. PREDNISONE [Concomitant]
     Indication: POLYMYALGIA RHEUMATICA
  13. OMEPRAZOLE [Concomitant]
     Route: 065
  14. IBUPROFEN [Concomitant]
     Route: 065
  15. CALCIPARIN [Concomitant]
     Route: 065
     Dates: start: 20121205, end: 20121209
  16. CALCIMAGON-D3 [Concomitant]
     Route: 065

REACTIONS (1)
  - Hepatocellular injury [Not Recovered/Not Resolved]
